FAERS Safety Report 4295185-4 (Version None)
Quarter: 2004Q1

REPORT INFORMATION
  Report Type: 
  Country: None (occurrence: None)
  Receive Date: 20040216
  Receipt Date: 20040122
  Transmission Date: 20041129
  Serious: Yes (Other)
  Sender: FDA-Public Use
  Company Number: PHBS2004BR01227

PATIENT
  Age: 69 Year
  Sex: Male
  Weight: 78 kg

DRUGS (4)
  1. CODATEN [Suspect]
     Indication: BACK PAIN
     Dosage: 1 DF, BID
     Route: 048
     Dates: start: 20040117, end: 20040119
  2. CAPTOPRIL [Concomitant]
     Dosage: 50 MG, BID
     Route: 048
  3. HIGROTON [Concomitant]
     Dosage: 50 MG, BID
     Route: 048
  4. ARTROSIL [Concomitant]
     Dosage: 620 MG, BID
     Route: 048

REACTIONS (5)
  - DIZZINESS [None]
  - INTESTINAL OBSTRUCTION [None]
  - SOMNOLENCE [None]
  - URINARY RETENTION [None]
  - VOMITING [None]
